FAERS Safety Report 8612488-0 (Version None)
Quarter: 2012Q3

REPORT INFORMATION
  Report Type: 
  Country: None (occurrence: None)
  Receive Date: 20120822
  Receipt Date: 20120813
  Transmission Date: 20120928
  Serious: Yes (Hospitalization)
  Sender: FDA-Public Use
  Company Number: FR-BRISTOL-MYERS SQUIBB COMPANY-16725921

PATIENT
  Age: 64 Year
  Sex: Male
  Weight: 74 kg

DRUGS (7)
  1. PREDNISONE TAB [Concomitant]
     Indication: RENAL TRANSPLANT
     Route: 048
     Dates: start: 20110324
  2. HYPERIUM [Concomitant]
     Indication: HYPERTENSION
     Route: 048
     Dates: start: 20120330
  3. OMEPRAZOLE [Concomitant]
     Indication: PROPHYLAXIS
     Route: 048
     Dates: start: 20110324
  4. CALCIUM CARBONATE [Concomitant]
     Indication: HYPOCALCAEMIA
     Route: 048
     Dates: start: 20110330
  5. NULOJIX [Suspect]
     Indication: RENAL TRANSPLANT
     Route: 042
     Dates: start: 20120405
  6. AMLODIPINE BESYLATE [Concomitant]
     Indication: HYPERTENSION
     Route: 048
     Dates: start: 20110328
  7. AZATHIOPRINE SODIUM [Suspect]
     Indication: RENAL TRANSPLANT
     Route: 048
     Dates: start: 20111117, end: 20120529

REACTIONS (1)
  - PANCYTOPENIA [None]
